FAERS Safety Report 20854869 (Version 1)
Quarter: 2022Q2

REPORT INFORMATION
  Report Type: Spontaneous
  Country: US (occurrence: None)
  Receive Date: 20220520
  Receipt Date: 20220520
  Transmission Date: 20220721
  Serious: Yes (Hospitalization)
  Sender: FDA-Public Use
  Company Number: None

PATIENT
  Age: 72 Year
  Sex: Female
  Weight: 77 kg

DRUGS (3)
  1. TAXOTERE [Suspect]
     Active Substance: DOCETAXEL
     Dates: end: 20220414
  2. PERTUZUMAB [Suspect]
     Active Substance: PERTUZUMAB
     Dates: end: 20220414
  3. HERCEPTIN [Suspect]
     Active Substance: TRASTUZUMAB
     Dates: end: 20220414

REACTIONS (8)
  - Diarrhoea [None]
  - Hypotension [None]
  - Hypomagnesaemia [None]
  - Sinus tachycardia [None]
  - Nausea [None]
  - Vomiting [None]
  - Toxicity to various agents [None]
  - Hypokalaemia [None]

NARRATIVE: CASE EVENT DATE: 20220429
